FAERS Safety Report 13705164 (Version 1)
Quarter: 2017Q2

REPORT INFORMATION
  Report Type: Spontaneous
  Country: US (occurrence: US)
  Receive Date: 20170629
  Receipt Date: 20170629
  Transmission Date: 20170830
  Serious: No
  Sender: FDA-Public Use
  Company Number: None

PATIENT
  Age: 33 Year
  Sex: Female

DRUGS (1)
  1. HUMIRA [Suspect]
     Active Substance: ADALIMUMAB
     Indication: PSORIATIC ARTHROPATHY
     Dosage: 40MG EVERY OTHER WEEK SUBCUTANEOUSLY
     Route: 058
     Dates: start: 20170418

REACTIONS (6)
  - Erythema [None]
  - Injection site pain [None]
  - Injection site urticaria [None]
  - Joint swelling [None]
  - Arthralgia [None]
  - Joint range of motion decreased [None]
